FAERS Safety Report 9285344 (Version 2)
Quarter: 2013Q2

REPORT INFORMATION
  Report Type: Spontaneous
  Country: US (occurrence: US)
  Receive Date: 20130513
  Receipt Date: 20130624
  Transmission Date: 20140414
  Serious: Yes (Other)
  Sender: FDA-Public Use
  Company Number: US-ASTELLAS-2013US002331

PATIENT
  Age: 31 Year
  Sex: Male

DRUGS (2)
  1. AMBISOME [Suspect]
     Indication: ZYGOMYCOSIS
     Dosage: 550 MG, UID/QD
     Route: 042
     Dates: start: 20130106
  2. AMBISOME [Suspect]
     Dosage: 50 MG, UNKNOWN/D
     Route: 042
     Dates: start: 20130118

REACTIONS (2)
  - Off label use [Unknown]
  - Pneumonectomy [Not Recovered/Not Resolved]
